FAERS Safety Report 9619250 (Version 1)
Quarter: 2013Q4

REPORT INFORMATION
  Report Type: Spontaneous
  Country: US (occurrence: US)
  Receive Date: 20131014
  Receipt Date: 20131014
  Transmission Date: 20140711
  Serious: No
  Sender: FDA-Public Use
  Company Number: US-009507513-1309USA010905

PATIENT
  Age: 91 Year
  Sex: Male

DRUGS (1)
  1. COSOPT PF [Suspect]
     Dosage: 1 DROP INTO RIGHT EYE TWICE A DAY
     Route: 047
     Dates: start: 20130625, end: 201309

REACTIONS (3)
  - Malaise [Not Recovered/Not Resolved]
  - Product packaging quantity issue [Unknown]
  - Product container issue [Unknown]
